FAERS Safety Report 26042982 (Version 1)
Quarter: 2025Q4

REPORT INFORMATION
  Report Type: Spontaneous
  Country: US (occurrence: PR)
  Receive Date: 20251113
  Receipt Date: 20251113
  Transmission Date: 20260118
  Serious: No
  Sender: ANI
  Company Number: US-ANIPHARMA-2025-PR-000091

PATIENT
  Sex: Female

DRUGS (1)
  1. CORTICOTROPIN [Suspect]
     Active Substance: CORTICOTROPIN
     Indication: Multiple sclerosis
     Route: 058

REACTIONS (5)
  - Fatigue [Unknown]
  - Pain [Unknown]
  - Visual impairment [Unknown]
  - Speech disorder [Unknown]
  - Hypoaesthesia [Unknown]
